FAERS Safety Report 7951610-6 (Version None)
Quarter: 2011Q4

REPORT INFORMATION
  Report Type: 
  Country: None (occurrence: None)
  Receive Date: 20111201
  Receipt Date: 20111124
  Transmission Date: 20120403
  Serious: Yes (Other)
  Sender: FDA-Public Use
  Company Number: ES-ROCHE-1008667

PATIENT
  Age: 65 Year
  Sex: Female

DRUGS (6)
  1. SIMVASTATIN [Concomitant]
  2. HYDROCHLOROTHIAZIDE [Concomitant]
  3. IBUPROFEN [Concomitant]
  4. LUCENTIS [Suspect]
     Indication: MACULAR DEGENERATION
     Route: 050
     Dates: start: 20110513
  5. ARTEDIL [Concomitant]
  6. LOSARTAN POTASSIUM [Concomitant]

REACTIONS (6)
  - RHINITIS [None]
  - LICHENOID KERATOSIS [None]
  - GLOMERULAR FILTRATION RATE INCREASED [None]
  - RHONCHI [None]
  - APHONIA [None]
  - CUTANEOUS LUPUS ERYTHEMATOSUS [None]
